FAERS Safety Report 17229564 (Version 3)
Quarter: 2020Q1

REPORT INFORMATION
  Report Type: Report from Study
  Country: US (occurrence: US)
  Receive Date: 20200103
  Receipt Date: 20200226
  Transmission Date: 20200409
  Serious: Yes (Hospitalization)
  Sender: FDA-Public Use
  Company Number: US-PFIZER INC-2019559022

PATIENT
  Age: 3 Year
  Sex: Male
  Weight: 19.2 kg

DRUGS (18)
  1. CYTARABINE. [Suspect]
     Active Substance: CYTARABINE
     Indication: B PRECURSOR TYPE ACUTE LEUKAEMIA
     Dosage: 53 MG, ONCE, MILLIGRAM/SQ. METER
     Route: 042
     Dates: start: 20190523
  2. THIOGUANINE [Suspect]
     Active Substance: THIOGUANINE
     Dosage: 40 MG, 1X/DAY, TABLET
     Route: 048
     Dates: start: 20191206
  3. METHOTREXATE SODIUM. [Suspect]
     Active Substance: METHOTREXATE SODIUM
     Indication: B PRECURSOR TYPE ACUTE LEUKAEMIA
     Dosage: 12 MG, ONCE, LNTRATHECAL
     Route: 037
     Dates: start: 20190523, end: 20191220
  4. CYTARABINE. [Suspect]
     Active Substance: CYTARABINE
     Dosage: 56 MG, SINGLE, MILLIGRAM/SQ. METER
     Route: 042
     Dates: start: 20190523
  5. DEXAMETHASONE. [Suspect]
     Active Substance: DEXAMETHASONE
     Indication: B PRECURSOR TYPE ACUTE LEUKAEMIA
     Dosage: 7.5 ML, 1X/DAY, TABLET, MILLIGRAM
     Route: 048
     Dates: start: 20191025, end: 20191114
  6. DOXORUBICIN HCL [Suspect]
     Active Substance: DOXORUBICIN HYDROCHLORIDE
     Indication: B PRECURSOR TYPE ACUTE LEUKAEMIA
     Dosage: 19 MG, SINGLE
     Route: 042
     Dates: start: 20191025, end: 20191108
  7. METHOTREXATE SODIUM. [Suspect]
     Active Substance: METHOTREXATE SODIUM
     Dosage: 12 MG, SINGLE, INTRATHECAL
     Route: 037
     Dates: start: 20200102
  8. CYCLOPHOSPHAMIDE. [Suspect]
     Active Substance: CYCLOPHOSPHAMIDE
     Indication: B PRECURSOR TYPE ACUTE LEUKAEMIA
     Dosage: 700 MG, ONCE
     Route: 042
     Dates: start: 20190523
  9. MERCAPTOPURINE. [Suspect]
     Active Substance: MERCAPTOPURINE
     Indication: B PRECURSOR TYPE ACUTE LEUKAEMIA
     Dosage: 300 MG, TABLET, WEEKLY
     Route: 048
     Dates: start: 20190523, end: 20191010
  10. PEGASPARGASE [Suspect]
     Active Substance: PEGASPARGASE
     Indication: B PRECURSOR TYPE ACUTE LEUKAEMIA
     Dosage: 1800 IU, ONCE
     Route: 042
     Dates: start: 20190606, end: 20191220
  11. VINCRISTINE SULFATE. [Suspect]
     Active Substance: VINCRISTINE SULFATE
     Indication: B PRECURSOR TYPE ACUTE LEUKAEMIA
     Dosage: 1.1 MG, SINGLE
     Route: 042
     Dates: start: 20190606, end: 20191220
  12. VINCRISTINE SULFATE. [Suspect]
     Active Substance: VINCRISTINE SULFATE
     Dosage: 1.1 MG, ONCE
     Route: 042
     Dates: start: 20200102
  13. INCB018424 [Suspect]
     Active Substance: RUXOLITINIB
     Indication: B PRECURSOR TYPE ACUTE LEUKAEMIA
     Dosage: 35 MG, 2X/DAY, TABLET
     Route: 048
     Dates: start: 20190523, end: 20191205
  14. INCB018424 [Suspect]
     Active Substance: RUXOLITINIB
     Dosage: 35 MG, 2X/DAY, TABLET
     Route: 048
     Dates: start: 20191206, end: 20191220
  15. INCB018424 [Suspect]
     Active Substance: RUXOLITINIB
     Dosage: 35 MG, 2X/DAY, TABLET
     Route: 048
     Dates: start: 20200102
  16. CYCLOPHOSPHAMIDE. [Suspect]
     Active Substance: CYCLOPHOSPHAMIDE
     Dosage: 730 MG, SINGLE
     Route: 042
     Dates: start: 20190523
  17. THIOGUANINE [Suspect]
     Active Substance: THIOGUANINE
     Indication: B PRECURSOR TYPE ACUTE LEUKAEMIA
     Dosage: 40 MG, 1X/DAY, TABLET
     Route: 048
     Dates: start: 20191122, end: 20191205
  18. PEGASPARGASE [Suspect]
     Active Substance: PEGASPARGASE
     Dosage: 1800 IU, ONCE
     Route: 042
     Dates: start: 20200103

REACTIONS (2)
  - Febrile neutropenia [Recovered/Resolved]
  - Febrile neutropenia [Recovered/Resolved]

NARRATIVE: CASE EVENT DATE: 20191116
